FAERS Safety Report 8554567-2 (Version None)
Quarter: 2012Q3

REPORT INFORMATION
  Report Type: 
  Country: None (occurrence: None)
  Receive Date: 20120731
  Receipt Date: 20120724
  Transmission Date: 20120928
  Serious: Yes (Hospitalization)
  Sender: FDA-Public Use
  Company Number: JP-009507513-1207JPN010124

PATIENT

DRUGS (10)
  1. PEG-INTRON [Suspect]
     Indication: HEPATITIS C
     Dosage: 1.5 MICROGRAM/KG/WEEK
     Route: 058
     Dates: start: 20120510
  2. TELAVIC [Suspect]
     Indication: HEPATITIS C
     Route: 048
     Dates: start: 20120510, end: 20120613
  3. REBETOL [Suspect]
     Indication: HEPATITIS C
     Route: 048
     Dates: start: 20120510
  4. EPADEL [Concomitant]
     Indication: PROPHYLAXIS
     Route: 048
     Dates: start: 20120510
  5. ALLOPURINOL [Concomitant]
     Route: 048
  6. LIVALO [Concomitant]
     Route: 048
     Dates: start: 20120510
  7. ROHYPNOL [Concomitant]
     Route: 048
  8. LENDORMIN D [Concomitant]
     Route: 048
  9. TELAVIC [Suspect]
     Route: 048
     Dates: start: 20120614
  10. ROZEREM [Concomitant]
     Route: 048

REACTIONS (1)
  - HYPERURICAEMIA [None]
